FAERS Safety Report 7198874-7 (Version None)
Quarter: 2010Q4

REPORT INFORMATION
  Report Type: 
  Country: None (occurrence: None)
  Receive Date: 20101227
  Receipt Date: 20101129
  Transmission Date: 20110411
  Serious: Yes (Death, Other)
  Sender: FDA-Public Use
  Company Number: US-BAXTER-2010BH003718

PATIENT
  Age: 72 Year
  Sex: Male

DRUGS (80)
  1. HEPARIN SODIUM INJECTION [Suspect]
     Indication: HAEMODIALYSIS
     Route: 040
     Dates: start: 20080109, end: 20080111
  2. HEPARIN SODIUM INJECTION [Suspect]
     Indication: INTRAVENOUS CATHETER MANAGEMENT
     Route: 040
     Dates: start: 20080109, end: 20080111
  3. HEPARIN SODIUM INJECTION [Suspect]
     Indication: THROMBECTOMY
     Route: 040
     Dates: start: 20080109, end: 20080111
  4. HEPARIN SODIUM INJECTION [Suspect]
     Indication: ARTERIOVENOUS FISTULA OPERATION
     Route: 040
     Dates: start: 20080109, end: 20080111
  5. HEPARIN SODIUM INJECTION [Suspect]
     Indication: THROMBOSIS PROPHYLAXIS
     Route: 040
     Dates: start: 20080109, end: 20080111
  6. HEPARIN SODIUM INJECTION [Suspect]
     Indication: ATRIAL FIBRILLATION
     Route: 040
     Dates: start: 20080109, end: 20080111
  7. HEPARIN SODIUM INJECTION [Suspect]
     Route: 040
     Dates: start: 20080111, end: 20080205
  8. HEPARIN SODIUM INJECTION [Suspect]
     Route: 040
     Dates: start: 20080111, end: 20080205
  9. HEPARIN SODIUM INJECTION [Suspect]
     Route: 040
     Dates: start: 20080111, end: 20080205
  10. HEPARIN SODIUM INJECTION [Suspect]
     Route: 040
     Dates: start: 20080111, end: 20080205
  11. HEPARIN SODIUM INJECTION [Suspect]
     Route: 040
     Dates: start: 20080111, end: 20080205
  12. HEPARIN SODIUM INJECTION [Suspect]
     Route: 040
     Dates: start: 20080111, end: 20080205
  13. HEPARIN SODIUM INJECTION [Suspect]
     Route: 042
     Dates: start: 20080114, end: 20080114
  14. HEPARIN SODIUM INJECTION [Suspect]
     Route: 042
     Dates: start: 20080114, end: 20080114
  15. HEPARIN SODIUM INJECTION [Suspect]
     Route: 042
     Dates: start: 20080114, end: 20080114
  16. HEPARIN SODIUM INJECTION [Suspect]
     Route: 042
     Dates: start: 20080114, end: 20080114
  17. HEPARIN SODIUM INJECTION [Suspect]
     Route: 042
     Dates: start: 20080114, end: 20080114
  18. HEPARIN SODIUM INJECTION [Suspect]
     Route: 042
     Dates: start: 20080114, end: 20080114
  19. HEPARIN SODIUM INJECTION [Suspect]
     Route: 042
     Dates: start: 20080115, end: 20080115
  20. HEPARIN SODIUM INJECTION [Suspect]
     Route: 042
     Dates: start: 20080115, end: 20080115
  21. HEPARIN SODIUM INJECTION [Suspect]
     Route: 042
     Dates: start: 20080115, end: 20080115
  22. HEPARIN SODIUM INJECTION [Suspect]
     Route: 042
     Dates: start: 20080115, end: 20080115
  23. HEPARIN SODIUM INJECTION [Suspect]
     Route: 042
     Dates: start: 20080115, end: 20080115
  24. HEPARIN SODIUM INJECTION [Suspect]
     Route: 042
     Dates: start: 20080115, end: 20080115
  25. HEPARIN SODIUM INJECTION [Suspect]
     Route: 042
     Dates: start: 20080116, end: 20080116
  26. HEPARIN SODIUM INJECTION [Suspect]
     Route: 042
     Dates: start: 20080116, end: 20080116
  27. HEPARIN SODIUM INJECTION [Suspect]
     Route: 042
     Dates: start: 20080116, end: 20080116
  28. HEPARIN SODIUM INJECTION [Suspect]
     Route: 042
     Dates: start: 20080116, end: 20080116
  29. HEPARIN SODIUM INJECTION [Suspect]
     Route: 042
     Dates: start: 20080116, end: 20080116
  30. HEPARIN SODIUM INJECTION [Suspect]
     Route: 042
     Dates: start: 20080116, end: 20080116
  31. HEPARIN SODIUM INJECTION [Suspect]
     Route: 042
     Dates: start: 20080116, end: 20080116
  32. HEPARIN SODIUM INJECTION [Suspect]
     Route: 042
     Dates: start: 20080116, end: 20080116
  33. HEPARIN SODIUM INJECTION [Suspect]
     Route: 042
     Dates: start: 20080116, end: 20080116
  34. HEPARIN SODIUM INJECTION [Suspect]
     Route: 042
     Dates: start: 20080116, end: 20080116
  35. HEPARIN SODIUM INJECTION [Suspect]
     Route: 042
     Dates: start: 20080116, end: 20080116
  36. HEPARIN SODIUM INJECTION [Suspect]
     Route: 042
     Dates: start: 20080116, end: 20080116
  37. HEPARIN SODIUM INJECTION [Suspect]
     Route: 058
     Dates: start: 20080116, end: 20080117
  38. HEPARIN SODIUM INJECTION [Suspect]
     Route: 058
     Dates: start: 20080116, end: 20080117
  39. HEPARIN SODIUM INJECTION [Suspect]
     Route: 058
     Dates: start: 20080116, end: 20080117
  40. HEPARIN SODIUM INJECTION [Suspect]
     Route: 058
     Dates: start: 20080116, end: 20080117
  41. HEPARIN SODIUM INJECTION [Suspect]
     Route: 058
     Dates: start: 20080116, end: 20080117
  42. HEPARIN SODIUM INJECTION [Suspect]
     Route: 058
     Dates: start: 20080116, end: 20080117
  43. HEPARIN SODIUM INJECTION [Suspect]
     Route: 040
     Dates: start: 20080129, end: 20080129
  44. HEPARIN SODIUM INJECTION [Suspect]
     Route: 040
     Dates: start: 20080129, end: 20080129
  45. HEPARIN SODIUM INJECTION [Suspect]
     Route: 040
     Dates: start: 20080129, end: 20080129
  46. HEPARIN SODIUM INJECTION [Suspect]
     Route: 040
     Dates: start: 20080129, end: 20080129
  47. HEPARIN SODIUM INJECTION [Suspect]
     Route: 040
     Dates: start: 20080129, end: 20080129
  48. HEPARIN SODIUM INJECTION [Suspect]
     Route: 040
     Dates: start: 20080129, end: 20080129
  49. HEPARIN SODIUM INJECTION [Suspect]
     Route: 040
     Dates: start: 20080130, end: 20080130
  50. HEPARIN SODIUM INJECTION [Suspect]
     Route: 040
     Dates: start: 20080130, end: 20080130
  51. HEPARIN SODIUM INJECTION [Suspect]
     Route: 040
     Dates: start: 20080130, end: 20080130
  52. HEPARIN SODIUM INJECTION [Suspect]
     Route: 040
     Dates: start: 20080130, end: 20080130
  53. HEPARIN SODIUM INJECTION [Suspect]
     Route: 040
     Dates: start: 20080130, end: 20080130
  54. HEPARIN SODIUM INJECTION [Suspect]
     Route: 040
     Dates: start: 20080130, end: 20080130
  55. HEPARIN SODIUM INJECTION [Suspect]
     Route: 040
     Dates: start: 20080131, end: 20080131
  56. HEPARIN SODIUM INJECTION [Suspect]
     Route: 040
     Dates: start: 20080131, end: 20080131
  57. HEPARIN SODIUM INJECTION [Suspect]
     Route: 040
     Dates: start: 20080131, end: 20080131
  58. HEPARIN SODIUM INJECTION [Suspect]
     Route: 040
     Dates: start: 20080131, end: 20080131
  59. HEPARIN SODIUM INJECTION [Suspect]
     Route: 040
     Dates: start: 20080131, end: 20080131
  60. HEPARIN SODIUM INJECTION [Suspect]
     Route: 040
     Dates: start: 20080131, end: 20080131
  61. HEPARIN SODIUM INJECTION [Suspect]
     Route: 040
     Dates: start: 20080131, end: 20080131
  62. HEPARIN SODIUM INJECTION [Suspect]
     Route: 040
     Dates: start: 20080131, end: 20080131
  63. HEPARIN SODIUM INJECTION [Suspect]
     Route: 040
     Dates: start: 20080131, end: 20080131
  64. HEPARIN SODIUM INJECTION [Suspect]
     Route: 040
     Dates: start: 20080131, end: 20080131
  65. HEPARIN SODIUM INJECTION [Suspect]
     Route: 040
     Dates: start: 20080131, end: 20080131
  66. HEPARIN SODIUM INJECTION [Suspect]
     Route: 040
     Dates: start: 20080131, end: 20080131
  67. HEPARIN SODIUM INJECTION [Suspect]
     Route: 058
     Dates: start: 20080202, end: 20080205
  68. HEPARIN SODIUM INJECTION [Suspect]
     Route: 058
     Dates: start: 20080202, end: 20080205
  69. HEPARIN SODIUM INJECTION [Suspect]
     Route: 058
     Dates: start: 20080202, end: 20080205
  70. HEPARIN SODIUM INJECTION [Suspect]
     Route: 058
     Dates: start: 20080202, end: 20080205
  71. HEPARIN SODIUM INJECTION [Suspect]
     Route: 058
     Dates: start: 20080202, end: 20080205
  72. HEPARIN SODIUM INJECTION [Suspect]
     Route: 058
     Dates: start: 20080202, end: 20080205
  73. HEPARIN SODIUM 5,000 UNITS IN DEXTROSE 5% [Suspect]
     Indication: ATRIAL FIBRILLATION
     Route: 042
     Dates: start: 20080129, end: 20080201
  74. CALCIUM ACETATE [Concomitant]
     Indication: PRODUCT USED FOR UNKNOWN INDICATION
     Route: 065
  75. XOPENEX [Concomitant]
     Indication: PRODUCT USED FOR UNKNOWN INDICATION
     Route: 065
  76. PANTOPRAZOLE SODIUM [Concomitant]
     Indication: PRODUCT USED FOR UNKNOWN INDICATION
     Route: 065
  77. ZOLPIDEM [Concomitant]
     Indication: PRODUCT USED FOR UNKNOWN INDICATION
     Route: 048
  78. CODEINE W/GUAIFENESIN [Concomitant]
     Indication: PRODUCT USED FOR UNKNOWN INDICATION
     Route: 065
  79. LIDODERM [Concomitant]
     Indication: PRODUCT USED FOR UNKNOWN INDICATION
     Route: 061
  80. FUROSEMIDE [Concomitant]
     Indication: PRODUCT USED FOR UNKNOWN INDICATION
     Route: 048

REACTIONS (18)
  - ARTERIOVENOUS FISTULA THROMBOSIS [None]
  - ATRIAL THROMBOSIS [None]
  - CARDIO-RESPIRATORY ARREST [None]
  - ERYTHEMA [None]
  - HAEMATOCHEZIA [None]
  - HAEMORRHAGE [None]
  - HEADACHE [None]
  - HYPERKALAEMIA [None]
  - HYPOTENSION [None]
  - ISCHAEMIC HEPATITIS [None]
  - LACTIC ACIDOSIS [None]
  - MITRAL VALVE INCOMPETENCE [None]
  - MULTI-ORGAN FAILURE [None]
  - MULTIPLE MYELOMA [None]
  - NAUSEA [None]
  - PNEUMONIA [None]
  - THROMBOCYTOPENIA [None]
  - VOMITING [None]
